FAERS Safety Report 6344365-2 (Version None)
Quarter: 2009Q3

REPORT INFORMATION
  Report Type: 
  Country: None (occurrence: None)
  Receive Date: 20090908
  Receipt Date: 20090828
  Transmission Date: 20100115
  Serious: Yes (Other)
  Sender: FDA-Public Use
  Company Number: AR-ROCHE-653380

PATIENT
  Age: 72 Year
  Sex: Male

DRUGS (3)
  1. TAMIFLU [Suspect]
     Indication: PROPHYLAXIS
     Route: 048
     Dates: start: 20090801, end: 20090806
  2. ENALAPRIL MALEATE [Concomitant]
     Indication: HYPERTENSION
     Route: 048
  3. CLORPROPAMIDA [Concomitant]
     Dosage: DRUG NAME REPORTED:CLORPROPAMINE, FREQUENCY : 1/2 DAILY
     Route: 048

REACTIONS (6)
  - ABDOMINAL PAIN [None]
  - CONFUSIONAL STATE [None]
  - DIARRHOEA [None]
  - NAUSEA [None]
  - VISUAL IMPAIRMENT [None]
  - VOMITING [None]
